APPROVED DRUG PRODUCT: PHENTERMINE HYDROCHLORIDE
Active Ingredient: PHENTERMINE HYDROCHLORIDE
Strength: 37.5MG
Dosage Form/Route: TABLET;ORAL
Application: A040876 | Product #001 | TE Code: AA
Applicant: KVK TECH INC
Approved: Mar 31, 2008 | RLD: No | RS: No | Type: RX